FAERS Safety Report 5403068-9 (Version None)
Quarter: 2007Q3

REPORT INFORMATION
  Report Type: 
  Country: None (occurrence: None)
  Receive Date: 20070801
  Receipt Date: 20070725
  Transmission Date: 20080115
  Serious: Yes (Other)
  Sender: FDA-Public Use
  Company Number: GB-SANOFI-SYNTHELABO-A01200708294

PATIENT
  Sex: Male

DRUGS (1)
  1. ELITEK [Suspect]
     Indication: TUMOUR LYSIS SYNDROME
     Route: 042

REACTIONS (1)
  - BLINDNESS TRANSIENT [None]
